FAERS Safety Report 6187917-5 (Version None)
Quarter: 2009Q2

REPORT INFORMATION
  Report Type: 
  Country: None (occurrence: None)
  Receive Date: 20090511
  Receipt Date: 20090511
  Transmission Date: 20091009
  Serious: Yes (Hospitalization)
  Sender: FDA-Public Use
  Company Number: None

PATIENT
  Sex: Male
  Weight: 65.5 kg

DRUGS (6)
  1. PEG-L ASPARAGINASE (PEGASPARGASE, ONCOSPAR) [Suspect]
     Dosage: 8100 IU
     Dates: start: 20090504
  2. VINCRISTINE SULFATE [Suspect]
     Dosage: 4 MG
     Dates: start: 20090330
  3. CYCLOPHOSPHAMIDE [Suspect]
     Dosage: 3230 MG
     Dates: start: 20090420
  4. CYTARABINE [Suspect]
     Dosage: 1928 MG
     Dates: start: 20090430
  5. MERCAPTOPURINE [Suspect]
     Dosage: 2800 MG
     Dates: start: 20090503
  6. METHOTREXATE [Suspect]
     Dosage: 30 MG
     Dates: start: 20090316

REACTIONS (2)
  - ABDOMINAL PAIN [None]
  - DRUG HYPERSENSITIVITY [None]
